FAERS Safety Report 7000854-9 (Version None)
Quarter: 2010Q3

REPORT INFORMATION
  Report Type: 
  Country: None (occurrence: None)
  Receive Date: 20100920
  Receipt Date: 20100913
  Transmission Date: 20110219
  Serious: Yes (Hospitalization)
  Sender: FDA-Public Use
  Company Number: SE-JNJFOC-20080203491

PATIENT
  Sex: Male

DRUGS (2)
  1. IPREN 200 MG [Suspect]
     Route: 048
  2. IPREN 200 MG [Suspect]
     Indication: PRODUCT USED FOR UNKNOWN INDICATION
     Dosage: A FEW FOR A SHORT PERIOD OF TIME
     Route: 048

REACTIONS (1)
  - GASTRIC ULCER [None]
